FAERS Safety Report 5542908-X (Version None)
Quarter: 2007Q4

REPORT INFORMATION
  Report Type: 
  Country: None (occurrence: None)
  Receive Date: 20071207
  Receipt Date: 20071126
  Transmission Date: 20080405
  Serious: Yes (Other)
  Sender: FDA-Public Use
  Company Number: ADE#07-026

PATIENT
  Sex: Male
  Weight: 108.8633 kg

DRUGS (1)
  1. MIRTAZAPINE [Suspect]
     Indication: PHOBIA
     Dosage: 1 TABLET DAILY

REACTIONS (14)
  - ABDOMINAL PAIN UPPER [None]
  - ACCOMMODATION DISORDER [None]
  - BALANCE DISORDER [None]
  - DEAFNESS [None]
  - DIZZINESS [None]
  - EAR DISCOMFORT [None]
  - GASTROOESOPHAGEAL REFLUX DISEASE [None]
  - HEADACHE [None]
  - ILL-DEFINED DISORDER [None]
  - MUSCULOSKELETAL STIFFNESS [None]
  - PENILE PAIN [None]
  - PEYRONIE'S DISEASE [None]
  - TINNITUS [None]
  - VISION BLURRED [None]
